FAERS Safety Report 8623171-X (Version None)
Quarter: 2012Q3

REPORT INFORMATION
  Report Type: 
  Country: None (occurrence: None)
  Receive Date: 20120827
  Receipt Date: 20120820
  Transmission Date: 20120928
  Serious: Yes (Other)
  Sender: FDA-Public Use
  Company Number: PHFR2012GB003972

PATIENT
  Sex: Female

DRUGS (5)
  1. VENLAFAXINE [Suspect]
     Indication: DEPRESSED MOOD
     Dosage: 150 MG, DAILY
     Route: 048
  2. RISPERIDONE [Suspect]
     Indication: SCHIZOPHRENIA
     Dosage: 2 MG, DAILY
     Route: 048
  3. HYOSCINE HYDROBROMIDE [Suspect]
     Dosage: 600 UG,DAILY
     Route: 048
  4. MIRTAZAPINE [Concomitant]
     Indication: DEPRESSED MOOD
     Dosage: 45 MG, DAILY
     Route: 048
  5. CLOZARIL [Suspect]
     Indication: SCHIZOPHRENIA
     Dosage: 450 MG, DAILY
     Route: 048
     Dates: start: 20111118

REACTIONS (3)
  - THERAPY RESPONDER [None]
  - TACHYCARDIA [None]
  - ANXIETY [None]
